FAERS Safety Report 8020595-9 (Version None)
Quarter: 2012Q1

REPORT INFORMATION
  Report Type: 
  Country: None (occurrence: None)
  Receive Date: 20120103
  Receipt Date: 20111222
  Transmission Date: 20120608
  Serious: Yes (Other)
  Sender: FDA-Public Use
  Company Number: US-ASTRAZENECA-2011SE73230

PATIENT
  Age: 69 Year
  Sex: Female

DRUGS (3)
  1. ATACAND [Suspect]
     Route: 048
  2. NEXIUM [Suspect]
     Route: 048
  3. AMLODIPINE [Suspect]
     Route: 065

REACTIONS (4)
  - HYPERTENSION [None]
  - DEPRESSION [None]
  - CARDIAC DISORDER [None]
  - LETHARGY [None]
